FAERS Safety Report 9776343 (Version 3)
Quarter: 2014Q1

REPORT INFORMATION
  Report Type: Spontaneous
  Country: US (occurrence: US)
  Receive Date: 20131220
  Receipt Date: 20140113
  Transmission Date: 20141002
  Serious: Yes (Death, Other)
  Sender: FDA-Public Use
  Company Number: US-TMC-CABO-13003789

PATIENT
  Age: 22 Year
  Sex: Male

DRUGS (2)
  1. COMETRIQ [Suspect]
     Indication: THYROID CANCER
     Dosage: 60 MG, QD
     Route: 048
     Dates: start: 20130622, end: 2013
  2. COMETRIQ [Suspect]
     Dosage: 40 MG, QD
     Route: 048
     Dates: start: 2013, end: 20131030

REACTIONS (2)
  - Malignant neoplasm progression [Fatal]
  - Hip fracture [Unknown]
